FAERS Safety Report 10389706 (Version 1)
Quarter: 2014Q1

REPORT INFORMATION
  Report Type: Spontaneous
  Country: US (occurrence: None)
  Receive Date: 20140306
  Receipt Date: 20140306
  Transmission Date: 20141002
  Serious: Yes (Hospitalization)
  Sender: FDA-Public Use
  Company Number: 163-21880-13091564

PATIENT
  Age: 66 Year
  Sex: Male
  Weight: 98.43 kg

DRUGS (12)
  1. REVLIMID (LENALIDOMIDE) (10 MILLIGRAM, CAPSULES) [Suspect]
     Indication: PLASMA CELL MYELOMA
     Route: 048
     Dates: start: 20110701, end: 20130706
  2. ASA 9ACETYLSALICYLIC ACID) (TABLETS) [Concomitant]
  3. COLACE (DOCUSATE SODIUM) (CAPSULES) [Concomitant]
  4. DEXAMETHASONE (DEXAMETHASONE) [Concomitant]
  5. OMEPRAZOLE (OMEPRAZOLE) [Concomitant]
  6. OXYCODONE HCL (OXYCODONE HYDROCHLORIDE) [Concomitant]
  7. OXYCONTIN (OXYCODONE HYDROCHLORIDE) [Concomitant]
  8. VITAMIN B12 (CYANOCOBALAMIN) [Concomitant]
  9. VITAMIN D (ERGOCALCIFEROL) [Concomitant]
  10. CALTRATE 600 +D (LEKOVIT CA) [Concomitant]
  11. CYTOXAN (CYCLOPHOSPHAMIDE [Concomitant]
  12. VELCADE (BORTEZOMIB) [Concomitant]

REACTIONS (6)
  - Renal failure [None]
  - Disorientation [None]
  - Plasma cell myeloma [None]
  - Blood calcium abnormal [None]
  - Drug ineffective [None]
  - Weight decreased [None]
